FAERS Safety Report 24853577 (Version 2)
Quarter: 2025Q1

REPORT INFORMATION
  Report Type: Report from Study
  Country: IN (occurrence: IN)
  Receive Date: 20250117
  Receipt Date: 20250130
  Transmission Date: 20250409
  Serious: Yes (Hospitalization)
  Sender: ROCHE
  Company Number: IN-ROCHE-10000145861

PATIENT
  Age: 57 Year
  Sex: Male

DRUGS (1)
  1. TECENTRIQ [Suspect]
     Active Substance: ATEZOLIZUMAB
     Indication: Hepatocellular carcinoma
     Route: 040
     Dates: start: 20240511

REACTIONS (4)
  - Hepatic cirrhosis [Unknown]
  - Gait inability [Unknown]
  - Fatigue [Unknown]
  - Malaise [Unknown]
